FAERS Safety Report 7282303-9 (Version None)
Quarter: 2011Q1

REPORT INFORMATION
  Report Type: 
  Country: None (occurrence: None)
  Receive Date: 20110209
  Receipt Date: 20110204
  Transmission Date: 20110831
  Serious: Yes (Other)
  Sender: FDA-Public Use
  Company Number: PT-PFIZER INC-2011018572

PATIENT
  Age: 84 Year
  Sex: Female
  Weight: 72 kg

DRUGS (6)
  1. OMEPRAZOLE [Concomitant]
     Dosage: 20 MG, UNK
     Route: 048
  2. LUDIOMIL [Concomitant]
     Dosage: 25 MG, UNK
     Route: 048
  3. ZARATOR [Suspect]
     Dosage: 10 MG, 1X/DAY
     Route: 048
  4. INDAPAMIDE [Concomitant]
     Dosage: 1.5 MG, UNK
     Route: 048
  5. SOCIAN [Concomitant]
     Dosage: 50 MG, UNK
     Route: 048
  6. DILFAR [Concomitant]
     Dosage: 60 MG, UNK
     Route: 048

REACTIONS (1)
  - CHEST PAIN [None]
